FAERS Safety Report 21708120 (Version 1)
Quarter: 2022Q4

REPORT INFORMATION
  Report Type: Spontaneous
  Country: US (occurrence: US)
  Receive Date: 20221209
  Receipt Date: 20221209
  Transmission Date: 20230113
  Serious: Yes (Hospitalization, Other)
  Sender: FDA-Public Use
  Company Number: US-SANOFI-01397394

PATIENT
  Sex: Female

DRUGS (2)
  1. DUPIXENT [Suspect]
     Active Substance: DUPILUMAB
     Indication: Nasal polyps
     Dosage: UNK
  2. LISINOPRIL [Suspect]
     Active Substance: LISINOPRIL
     Dosage: UNK

REACTIONS (2)
  - Adverse reaction [Unknown]
  - Glaucoma [Unknown]
